FAERS Safety Report 7234326-3 (Version None)
Quarter: 2011Q1

REPORT INFORMATION
  Report Type: 
  Country: None (occurrence: None)
  Receive Date: 20110119
  Receipt Date: 20110111
  Transmission Date: 20110831
  Serious: Yes (Hospitalization)
  Sender: FDA-Public Use
  Company Number: JP-PFIZER INC-2011010579

PATIENT
  Age: 65 Year
  Sex: Male

DRUGS (4)
  1. ADRIACIN [Suspect]
     Indication: ADULT T-CELL LYMPHOMA/LEUKAEMIA
     Dosage: 60 MG, WEEKLY
     Route: 041
     Dates: start: 20101008
  2. ENDOXAN [Suspect]
     Indication: ADULT T-CELL LYMPHOMA/LEUKAEMIA
     Dosage: 520 MG, WEEKLY
     Route: 041
     Dates: start: 20101008
  3. PREDONINE [Suspect]
     Indication: ADULT T-CELL LYMPHOMA/LEUKAEMIA
     Dosage: UNK
     Route: 048
     Dates: start: 20101008
  4. ONCOVIN [Suspect]
     Indication: ADULT T-CELL LYMPHOMA/LEUKAEMIA
     Dosage: 1.5 MG, WEEKLY
     Route: 041
     Dates: start: 20101008

REACTIONS (1)
  - PNEUMONIA [None]
